FAERS Safety Report 12232368 (Version 5)
Quarter: 2016Q3

REPORT INFORMATION
  Report Type: Report from Study
  Country: US (occurrence: US)
  Receive Date: 20160401
  Receipt Date: 20160831
  Transmission Date: 20161109
  Serious: Yes (Hospitalization)
  Sender: FDA-Public Use
  Company Number: US-BAYER-2016-002861

PATIENT
  Age: 18 Year
  Sex: Female

DRUGS (12)
  1. ADEMPAS [Suspect]
     Active Substance: RIOCIGUAT
     Indication: PULMONARY ARTERIAL HYPERTENSION
     Dosage: UNK
     Dates: start: 20151014
  2. ACETYLSALICYLIC ACID (} 100 MG) [Suspect]
     Active Substance: ASPIRIN
     Dosage: UNK
  3. ADEMPAS [Suspect]
     Active Substance: RIOCIGUAT
     Indication: PULMONARY ARTERIAL HYPERTENSION
     Dosage: 1.5 MG, TID
     Route: 048
     Dates: start: 20151013
  4. ALBUTEROL. [Concomitant]
     Active Substance: ALBUTEROL
  5. SYMBICORT [Concomitant]
     Active Substance: BUDESONIDE\FORMOTEROL FUMARATE DIHYDRATE
  6. MACROGOL 3350 [Concomitant]
     Active Substance: POLYETHYLENE GLYCOL 3350
  7. EMTRICITABINE W/TENOFOVIR DISOPROXIL FUMARATE [Concomitant]
     Active Substance: EMTRICITABINE\TENOFOVIR DISOPROXIL
  8. ARIXTRA [Concomitant]
     Active Substance: FONDAPARINUX SODIUM
  9. TYLENOL [Concomitant]
     Active Substance: ACETAMINOPHEN
  10. ADEMPAS [Suspect]
     Active Substance: RIOCIGUAT
     Indication: PULMONARY ARTERIAL HYPERTENSION
     Dosage: 2 MG, TID
     Route: 048
     Dates: start: 20160624, end: 20160712
  11. ADEMPAS [Suspect]
     Active Substance: RIOCIGUAT
     Indication: PULMONARY ARTERIAL HYPERTENSION
     Dosage: 2.5 MG, TID
     Route: 048
  12. IRON [Concomitant]
     Active Substance: IRON

REACTIONS (9)
  - Haemoptysis [None]
  - Dyspnoea [None]
  - Pleural effusion [None]
  - Pulmonary arterial hypertension [None]
  - Dyspnoea [None]
  - Hospitalisation [None]
  - Pericardial effusion [None]
  - Dyspnoea [None]
  - Pulmonary embolism [None]

NARRATIVE: CASE EVENT DATE: 20151228
